FAERS Safety Report 4709551-3 (Version None)
Quarter: 2005Q3

REPORT INFORMATION
  Report Type: 
  Country: None (occurrence: None)
  Receive Date: 20050707
  Receipt Date: 20050615
  Transmission Date: 20060218
  Serious: No
  Sender: FDA-Public Use
  Company Number: USA050598703

PATIENT
  Age: 15 Year
  Sex: Male
  Weight: 49 kg

DRUGS (2)
  1. STRATTERA [Suspect]
     Indication: ATTENTION DEFICIT/HYPERACTIVITY DISORDER
     Dosage: 100 MG DAY
     Dates: start: 20040610, end: 20050510
  2. DEXTROAMPHETAMINE [Concomitant]

REACTIONS (3)
  - BILIRUBIN CONJUGATED INCREASED [None]
  - BLOOD BILIRUBIN INCREASED [None]
  - INFECTIOUS MONONUCLEOSIS [None]
